FAERS Safety Report 5588175-2 (Version None)
Quarter: 2008Q1

REPORT INFORMATION
  Report Type: 
  Country: None (occurrence: None)
  Receive Date: 20080111
  Receipt Date: 20080108
  Transmission Date: 20080703
  Serious: Yes (Other)
  Sender: FDA-Public Use
  Company Number: US-ASTRAZENECA-2008UW00590

PATIENT
  Age: 87 Year
  Sex: Male
  Weight: 68 kg

DRUGS (5)
  1. CRESTOR [Suspect]
     Indication: BLOOD CHOLESTEROL INCREASED
     Route: 048
  2. LISINOPRIL [Concomitant]
  3. METOPROLOL SUCCINATE [Concomitant]
     Route: 048
  4. ASPIRIN [Concomitant]
  5. PRILOSEC [Concomitant]
     Route: 048

REACTIONS (2)
  - CARDIAC PACEMAKER INSERTION [None]
  - FATIGUE [None]
